FAERS Safety Report 26194385 (Version 1)
Quarter: 2025Q4

REPORT INFORMATION
  Report Type: Report from Study
  Country: CA (occurrence: CA)
  Receive Date: 20251224
  Receipt Date: 20251224
  Transmission Date: 20260118
  Serious: Yes (Hospitalization, Other)
  Sender: ASTELLAS
  Company Number: CA-PFIZER INC-202500246758

PATIENT
  Age: 68 Year
  Sex: Female

DRUGS (3)
  1. ENFORTUMAB VEDOTIN-EJFV [Suspect]
     Active Substance: ENFORTUMAB VEDOTIN-EJFV
     Indication: Transitional cell carcinoma metastatic
     Dosage: UNK
     Route: 065
  2. PEMBROLIZUMAB [Suspect]
     Active Substance: PEMBROLIZUMAB
     Indication: Transitional cell carcinoma metastatic
     Dosage: 200 MG, 1 EVERY 3 WEEKS
     Route: 042
  3. PEMBROLIZUMAB [Suspect]
     Active Substance: PEMBROLIZUMAB
     Dosage: 200 MG, 1 EVERY 3 WEEKS
     Route: 042

REACTIONS (8)
  - Flatulence [Recovered/Resolved]
  - Gingival pain [Recovered/Resolved]
  - Mucosal inflammation [Recovered/Resolved]
  - Oedema [Recovered/Resolved]
  - Oedema peripheral [Recovered/Resolved]
  - Pain [Recovered/Resolved]
  - Pollakiuria [Recovered/Resolved]
  - Inappropriate schedule of product administration [Recovered/Resolved]
